FAERS Safety Report 23442128 (Version 1)
Quarter: 2024Q1

REPORT INFORMATION
  Report Type: Spontaneous
  Country: SG (occurrence: SG)
  Receive Date: 20240125
  Receipt Date: 20240125
  Transmission Date: 20240409
  Serious: Yes (Hospitalization)
  Sender: FDA-Public Use
  Company Number: SG-STRIDES ARCOLAB LIMITED-2024SP000884

PATIENT
  Age: 70 Year
  Sex: Female

DRUGS (6)
  1. AMOXICILLIN [Suspect]
     Active Substance: AMOXICILLIN
     Indication: Listeriosis
     Dosage: UNK
     Route: 048
  2. AMOXICILLIN [Suspect]
     Active Substance: AMOXICILLIN
     Indication: Arthritis bacterial
  3. AMPICILLIN [Concomitant]
     Active Substance: AMPICILLIN
     Indication: Listeriosis
     Dosage: 2 GRAM, EVERY 4 HRS
     Route: 042
  4. AMPICILLIN [Concomitant]
     Active Substance: AMPICILLIN
     Indication: Arthritis bacterial
  5. GENTAMICIN [Concomitant]
     Active Substance: GENTAMICIN
     Indication: Listeriosis
     Dosage: 120 MILLIGRAM, EVERY 12 HRS
     Route: 042
  6. GENTAMICIN [Concomitant]
     Active Substance: GENTAMICIN
     Indication: Arthritis bacterial

REACTIONS (2)
  - Drug eruption [Unknown]
  - Off label use [Unknown]
